FAERS Safety Report 6791310-1 (Version None)
Quarter: 2010Q2

REPORT INFORMATION
  Report Type: 
  Country: None (occurrence: None)
  Receive Date: 20100624
  Receipt Date: 20100623
  Transmission Date: 20101027
  Serious: Yes (Hospitalization)
  Sender: FDA-Public Use
  Company Number: FR-ROCHE-707612

PATIENT
  Sex: Female

DRUGS (24)
  1. TOCILIZUMAB [Suspect]
     Indication: RHEUMATOID ARTHRITIS
     Route: 042
     Dates: start: 20051010
  2. TOCILIZUMAB [Suspect]
     Route: 042
     Dates: start: 20100208
  3. TOCILIZUMAB [Suspect]
     Route: 042
     Dates: start: 20060313
  4. TOCILIZUMAB [Suspect]
     Route: 042
     Dates: start: 20100315
  5. TOCILIZUMAB [Suspect]
     Route: 042
     Dates: start: 20100406
  6. TOCILIZUMAB [Suspect]
     Route: 042
     Dates: start: 20100503
  7. TOCILIZUMAB [Suspect]
     Dosage: THE PATIENT WAS PREVIOUSLY IN WA18063 STUDY.
     Route: 042
  8. METHOTREXATE [Suspect]
     Indication: RHEUMATOID ARTHRITIS
     Dosage: THE PATIENT WAS PREVIOUSLY IN WA18063 STUDY.
     Route: 065
  9. CELECOXIB [Concomitant]
     Dates: start: 20060101, end: 20060501
  10. DIOSMINE [Concomitant]
     Dates: start: 20081218, end: 20090401
  11. DI-ANTALVIC [Concomitant]
     Dates: start: 20050601, end: 20060301
  12. NISISCO [Concomitant]
     Route: 048
     Dates: start: 20030101
  13. NISISCO [Concomitant]
     Dosage: TDD: 160/ 25MG ONCE A DAY
     Route: 048
  14. ALOPURINOL [Concomitant]
     Dates: start: 20070723
  15. ALOPURINOL [Concomitant]
     Dates: end: 20090601
  16. SIMVASTATIN [Concomitant]
     Dosage: ONCE A DAY
     Route: 048
     Dates: start: 20090825
  17. FOLIC ACID [Concomitant]
     Dates: start: 20051001
  18. METHOTREXATE [Concomitant]
     Route: 048
     Dates: start: 20050321
  19. ACEBUTOLOL [Concomitant]
     Dosage: ONCE A DAY
     Route: 048
  20. FLECAINIDE ACETATE [Concomitant]
     Dates: end: 20071016
  21. FLECAINIDE ACETATE [Concomitant]
  22. ESOMEPRAZOLE [Concomitant]
     Dates: end: 20090401
  23. NITROFURANTOIN [Concomitant]
     Dosage: DRUG: NITROFURANTDINE
  24. CALCIUM CARBONATE [Concomitant]

REACTIONS (1)
  - TRANSIENT ISCHAEMIC ATTACK [None]
